FAERS Safety Report 20660163 (Version 1)
Quarter: 2022Q1

REPORT INFORMATION
  Report Type: Spontaneous
  Country: US (occurrence: US)
  Receive Date: 20220331
  Receipt Date: 20220331
  Transmission Date: 20220423
  Serious: Yes (Other)
  Sender: FDA-Public Use
  Company Number: US-SUNOVION-2022SUN000942

PATIENT
  Age: 33 Year
  Sex: Male
  Weight: 53.696 kg

DRUGS (3)
  1. APTIOM [Suspect]
     Active Substance: ESLICARBAZEPINE ACETATE
     Indication: Epilepsy
     Dosage: 800 MG, QD
     Route: 048
  2. LAMICTAL XR [Suspect]
     Active Substance: LAMOTRIGINE
     Indication: Epilepsy
     Dosage: 600 MG, QD (3 TABLETS OF 200 MG)
     Route: 048
  3. LAMICTAL XR [Suspect]
     Active Substance: LAMOTRIGINE
     Dosage: 600 MG, QD (1 TABLETS OF 200 MG IN THE MORNING 2 TABLETS AT NIGHT)
     Route: 048

REACTIONS (4)
  - Seizure [Unknown]
  - Feeling abnormal [Unknown]
  - Insomnia [Unknown]
  - Dizziness [Recovered/Resolved]

NARRATIVE: CASE EVENT DATE: 20210201
